FAERS Safety Report 4788294-4 (Version None)
Quarter: 2005Q4

REPORT INFORMATION
  Report Type: 
  Country: None (occurrence: None)
  Receive Date: 20051003
  Receipt Date: 20050918
  Transmission Date: 20060501
  Serious: Yes (Other)
  Sender: FDA-Public Use
  Company Number: 2005131178

PATIENT
  Age: 62 Year
  Sex: Female
  Weight: 43.0917 kg

DRUGS (11)
  1. DIFLUCAN [Suspect]
     Indication: FUNGAL INFECTION
     Dosage: (150 MG), ORAL
     Route: 048
     Dates: end: 20050101
  2. FLUCONAZOLE [Suspect]
     Indication: FUNGAL INFECTION
     Dosage: 150 MG), ORAL
     Route: 048
     Dates: start: 20050101, end: 20050101
  3. CORTICOSTEROIDS (CORTICOSTEROIDS) [Suspect]
     Indication: RASH
     Dosage: INTRAMUSCULAR
     Route: 030
     Dates: start: 20050101, end: 20050101
  4. CORTICOSTEROIDS (CORTICOSTEROIDS) [Suspect]
     Indication: RASH
     Dosage: INTRAMUSCULAR
     Route: 030
     Dates: start: 20050101, end: 20050101
  5. ACTONEL [Concomitant]
  6. SYNTHROID [Concomitant]
  7. MIACALCIN [Concomitant]
  8. VAGIFEM [Concomitant]
  9. LIPITOR [Concomitant]
  10. ESTRACE [Concomitant]
  11. PREMARIN [Concomitant]

REACTIONS (11)
  - BURNING SENSATION [None]
  - ECZEMA [None]
  - ERYTHEMA [None]
  - FUNGAL INFECTION [None]
  - MUSCULOSKELETAL STIFFNESS [None]
  - OSTEOPOROSIS [None]
  - PAIN [None]
  - PRURITUS [None]
  - RASH [None]
  - SKIN DISORDER [None]
  - SKIN REACTION [None]
